FAERS Safety Report 7257955-X (Version None)
Quarter: 2011Q1

REPORT INFORMATION
  Report Type: 
  Country: None (occurrence: None)
  Receive Date: 20110129
  Receipt Date: 20100611
  Transmission Date: 20110831
  Serious: No
  Sender: FDA-Public Use
  Company Number: US-ABBOTT-10P-163-0650646-00

PATIENT
  Sex: Female
  Weight: 77.18 kg

DRUGS (5)
  1. CELEXA [Concomitant]
     Indication: DEPRESSION
  2. METHOTREXATE [Concomitant]
     Indication: RHEUMATOID ARTHRITIS
  3. FOLIC ACID [Concomitant]
     Indication: VITAMIN SUPPLEMENTATION
  4. HUMIRA [Suspect]
     Indication: RHEUMATOID ARTHRITIS
     Route: 058
     Dates: start: 20100201
  5. CRYSTALLINE VIT B12 INJ [Concomitant]
     Indication: VITAMIN SUPPLEMENTATION

REACTIONS (4)
  - PRURITUS [None]
  - RASH PAPULAR [None]
  - URTICARIA [None]
  - RASH [None]
